FAERS Safety Report 12305277 (Version 1)
Quarter: 2016Q2

REPORT INFORMATION
  Report Type: Spontaneous
  Country: CN (occurrence: CN)
  Receive Date: 20160426
  Receipt Date: 20160426
  Transmission Date: 20160815
  Serious: Yes (Other)
  Sender: FDA-Public Use
  Company Number: CN-GLAXOSMITHKLINE-CN2016GSK051535

PATIENT
  Sex: Female

DRUGS (1)
  1. FLIXONASE [Suspect]
     Active Substance: FLUTICASONE PROPIONATE
     Indication: RHINITIS ALLERGIC
     Dosage: UNK
     Route: 055
     Dates: start: 201510

REACTIONS (2)
  - Lacrimation increased [Recovering/Resolving]
  - Ocular hypertension [Recovering/Resolving]

NARRATIVE: CASE EVENT DATE: 201511
